FAERS Safety Report 9816215 (Version 1)
Quarter: 2014Q1

REPORT INFORMATION
  Report Type: Spontaneous
  Country: FR (occurrence: FR)
  Receive Date: 20140114
  Receipt Date: 20140114
  Transmission Date: 20141002
  Serious: Yes (Death)
  Sender: FDA-Public Use
  Company Number: FR-TEVA-455815ISR

PATIENT
  Age: 19 Year
  Sex: Female

DRUGS (1)
  1. LEELOO [Suspect]
     Dosage: FOR 6 MONTHS

REACTIONS (1)
  - Death [Fatal]
